FAERS Safety Report 23471140 (Version 1)
Quarter: 2024Q1

REPORT INFORMATION
  Report Type: Spontaneous
  Country: AT (occurrence: AT)
  Receive Date: 20240202
  Receipt Date: 20240202
  Transmission Date: 20240410
  Serious: Yes (Life-Threatening, Other)
  Sender: FDA-Public Use
  Company Number: None

PATIENT
  Age: 68 Year
  Sex: Male
  Weight: 68 kg

DRUGS (9)
  1. INREBIC [Suspect]
     Active Substance: FEDRATINIB HYDROCHLORIDE
     Indication: Essential thrombocythaemia
     Dosage: INREBIC 400 MG DAILY (INREBIC PAUSED SINCE 12.01.2024)
     Route: 048
     Dates: start: 20230922, end: 20240112
  2. PROSPAN [LEVAMISOLE HYDROCHLORIDE] [Concomitant]
  3. HYDROXYUREA [Concomitant]
     Active Substance: HYDROXYUREA
     Dosage: LITALIR 500 MG 2X/WOCHE
  4. MUCOBENE [Concomitant]
     Indication: Product used for unknown indication
     Dosage: MUCOBENE 600 MG 1XTGL.
  5. DIHYDROCODEINE BITARTRATE [Concomitant]
     Active Substance: DIHYDROCODEINE BITARTRATE
     Indication: Product used for unknown indication
     Dosage: PARACODIN TR 1X TGL.
  6. ALLOPURINOL [Concomitant]
     Active Substance: ALLOPURINOL
     Indication: Product used for unknown indication
     Dosage: ALLOPURINOL 100 MG 1XTGL.
  7. PANTOPRAZOLE [Concomitant]
     Active Substance: PANTOPRAZOLE
     Indication: Product used for unknown indication
     Dosage: PANTOPRAZOL 40 MG 1X TGL.
  8. CYANOCOBALAMIN\PYRIDOXAMINE HYDROCHLORIDE\THIAMINE HYDROCHLORIDE [Concomitant]
     Active Substance: CYANOCOBALAMIN\PYRIDOXAMINE HYDROCHLORIDE\THIAMINE HYDROCHLORIDE
     Indication: Product used for unknown indication
     Dosage: PRONERV 1-0-0-0
  9. HALDOL [Concomitant]
     Active Substance: HALOPERIDOL
     Indication: Product used for unknown indication
     Dosage: HALDOL TR 2XTGL.

REACTIONS (3)
  - Wernicke^s encephalopathy [Not Recovered/Not Resolved]
  - Circadian rhythm sleep disorder [Not Recovered/Not Resolved]
  - Encephalopathy [Not Recovered/Not Resolved]

NARRATIVE: CASE EVENT DATE: 20240112
